FAERS Safety Report 16369548 (Version 1)
Quarter: 2019Q2

REPORT INFORMATION
  Report Type: Spontaneous
  Country: MX (occurrence: MX)
  Receive Date: 20190530
  Receipt Date: 20190530
  Transmission Date: 20190711
  Serious: Yes (Life-Threatening, Hospitalization, Other)
  Sender: FDA-Public Use
  Company Number: MX-LUPIN PHARMACEUTICALS INC.-2019-03314

PATIENT
  Age: 19 Year
  Sex: Female
  Weight: 47.5 kg

DRUGS (12)
  1. VALPROATE MAGNESIUM [Interacting]
     Active Substance: VALPROATE MAGNESIUM
     Indication: FOCAL DYSCOGNITIVE SEIZURES
  2. VALPROATE MAGNESIUM [Interacting]
     Active Substance: VALPROATE MAGNESIUM
     Indication: SUICIDE ATTEMPT
     Dosage: UNK, OVERDOSE
     Route: 065
  3. CALCIUM [Concomitant]
     Active Substance: CALCIUM
     Indication: SYSTEMIC LUPUS ERYTHEMATOSUS
     Dosage: UNK
     Route: 065
  4. LAMOTRIGINE. [Interacting]
     Active Substance: LAMOTRIGINE
     Indication: SUICIDE ATTEMPT
     Dosage: UNK,
     Route: 065
  5. LAMOTRIGINE. [Interacting]
     Active Substance: LAMOTRIGINE
     Indication: FOCAL DYSCOGNITIVE SEIZURES
     Dosage: UNK, OVERDOSE FOR SUICIDE
     Route: 065
  6. PREDNISONE. [Suspect]
     Active Substance: PREDNISONE
     Indication: SYSTEMIC LUPUS ERYTHEMATOSUS
     Dosage: UNK
     Route: 065
  7. HYDROXYCHLOROQUINE [Suspect]
     Active Substance: HYDROXYCHLOROQUINE
     Indication: SYSTEMIC LUPUS ERYTHEMATOSUS
     Dosage: UNK
     Route: 065
  8. WARFARIN [Interacting]
     Active Substance: WARFARIN
     Indication: ANTIPHOSPHOLIPID SYNDROME
     Dosage: UNK
     Route: 065
  9. PHENOBARBITAL. [Interacting]
     Active Substance: PHENOBARBITAL
     Indication: FOCAL DYSCOGNITIVE SEIZURES
     Dosage: UNK
     Route: 065
  10. AZATHIOPRINE. [Concomitant]
     Active Substance: AZATHIOPRINE
     Indication: SYSTEMIC LUPUS ERYTHEMATOSUS
     Dosage: UNK
     Route: 065
  11. VITAMIN D [COLECALCIFEROL] [Concomitant]
     Active Substance: CHOLECALCIFEROL
     Indication: SYSTEMIC LUPUS ERYTHEMATOSUS
     Dosage: UNK
     Route: 065
  12. LEVETIRACETAM. [Interacting]
     Active Substance: LEVETIRACETAM
     Indication: FOCAL DYSCOGNITIVE SEIZURES
     Dosage: UNK
     Route: 065

REACTIONS (11)
  - Suicidal ideation [Recovered/Resolved]
  - Asthenia [Recovering/Resolving]
  - Major depression [Recovered/Resolved]
  - Intentional overdose [Unknown]
  - Suicide attempt [Unknown]
  - Altered state of consciousness [Recovering/Resolving]
  - Impulsive behaviour [Recovered/Resolved]
  - Drug interaction [Unknown]
  - Nausea [Recovering/Resolving]
  - Dizziness [Recovering/Resolving]
  - Irritability [Recovered/Resolved]
